FAERS Safety Report 10102933 (Version 1)
Quarter: 2014Q2

REPORT INFORMATION
  Report Type: Spontaneous
  Country: AU (occurrence: AU)
  Receive Date: 20140424
  Receipt Date: 20140424
  Transmission Date: 20141212
  Serious: Yes (Other)
  Sender: FDA-Public Use
  Company Number: PHHY2014AU048266

PATIENT
  Sex: Male

DRUGS (2)
  1. ATORVASTATIN SANDOZ [Suspect]
  2. EZETIMIBE [Suspect]

REACTIONS (1)
  - Immune thrombocytopenic purpura [Unknown]
